FAERS Safety Report 9437886 (Version 2)
Quarter: 2013Q3

REPORT INFORMATION
  Report Type: Report from Study
  Country: JP (occurrence: JP)
  Receive Date: 20130802
  Receipt Date: 20130909
  Transmission Date: 20140515
  Serious: Yes (Death)
  Sender: FDA-Public Use
  Company Number: JP-PFIZER INC-2013226190

PATIENT
  Age: 88 Year
  Sex: Female
  Weight: 37.2 kg

DRUGS (2)
  1. ZITHROMAC [Suspect]
     Indication: PNEUMONIA
     Dosage: 500 MG DAILY
     Route: 041
     Dates: start: 20130109, end: 20130113
  2. MEROPEN [Concomitant]
     Indication: PNEUMONIA
     Dosage: UNK
     Route: 042
     Dates: start: 20130109, end: 20130113

REACTIONS (1)
  - Pneumonia [Fatal]
